FAERS Safety Report 5527667-9 (Version None)
Quarter: 2007Q4

REPORT INFORMATION
  Report Type: 
  Country: None (occurrence: None)
  Receive Date: 20071121
  Receipt Date: 20071105
  Transmission Date: 20080405
  Serious: Yes (Hospitalization)
  Sender: FDA-Public Use
  Company Number: 013263

PATIENT
  Age: 50 Year
  Sex: Male
  Weight: 98 kg

DRUGS (7)
  1. PRIALT [Suspect]
     Indication: BACK PAIN
     Dosage: 0.17 UG, ONCE/HOUR, INTRATHECAL ; 0.3 UG, ONCE/HOUR, INTRATHECAL
     Route: 037
     Dates: start: 20070830, end: 20071009
  2. PRIALT [Suspect]
     Indication: BACK PAIN
     Dosage: 0.17 UG, ONCE/HOUR, INTRATHECAL ; 0.3 UG, ONCE/HOUR, INTRATHECAL
     Route: 037
     Dates: start: 20070911, end: 20071022
  3. ACETYLSALICYLIC ACID SRT [Concomitant]
  4. PASPERTIN /00041902/ (METOCLOPRAMIDE HYDROCHLORIDE) [Concomitant]
  5. SIMVASTATIN [Concomitant]
  6. LORAZEPAM [Concomitant]
  7. UBRETID (DISTIGMINE BROMIDE) [Concomitant]

REACTIONS (3)
  - HEADACHE [None]
  - HYPERAESTHESIA [None]
  - PAIN [None]
